FAERS Safety Report 6450141-2 (Version None)
Quarter: 2009Q4

REPORT INFORMATION
  Report Type: 
  Country: None (occurrence: None)
  Receive Date: 20091123
  Receipt Date: 20091119
  Transmission Date: 20100525
  Serious: Yes (Hospitalization, Other)
  Sender: FDA-Public Use
  Company Number: US-ABBOTT-09P-163-0609692-00

PATIENT
  Sex: Female
  Weight: 74.456 kg

DRUGS (13)
  1. HUMIRA [Suspect]
     Indication: CROHN'S DISEASE
     Route: 058
     Dates: start: 20071101
  2. HUMIRA [Suspect]
     Route: 058
     Dates: start: 20091115
  3. PREDNISONE [Concomitant]
     Indication: DRUG USE FOR UNKNOWN INDICATION
     Dosage: 5MG TABLET DIVIDED IN 4 AND TAKES1/4 OF A PILL A DAY
     Route: 048
  4. FUROSEMIDE [Concomitant]
     Indication: FLUID RETENTION
  5. SULFAZINE [Concomitant]
     Indication: DRUG USE FOR UNKNOWN INDICATION
     Route: 048
  6. TORSEMIDE [Concomitant]
     Indication: SWELLING
  7. TRAMAL [Concomitant]
     Indication: DRUG USE FOR UNKNOWN INDICATION
  8. NEXIUM [Concomitant]
     Indication: GASTRIC DISORDER
  9. MAGNESIUM [Concomitant]
     Indication: MUSCLE SPASMS
  10. FAMOTIDINE [Concomitant]
     Indication: GASTRIC DISORDER
  11. LISINOPRIL [Concomitant]
     Indication: HYPERTENSION
  12. M.V.I. [Concomitant]
     Indication: DRUG USE FOR UNKNOWN INDICATION
  13. COUMADIN [Concomitant]
     Indication: THROMBOSIS PROPHYLAXIS

REACTIONS (6)
  - BLOOD DISORDER [None]
  - CHONDROPATHY [None]
  - GASTROENTERITIS [None]
  - HYPOKALAEMIA [None]
  - PAIN IN EXTREMITY [None]
  - THROMBOSIS [None]
